FAERS Safety Report 10048679 (Version 2)
Quarter: 2014Q2

REPORT INFORMATION
  Report Type: Other
  Country: DE (occurrence: DE)
  Receive Date: 20140331
  Receipt Date: 20140515
  Transmission Date: 20141212
  Serious: Yes (Other)
  Sender: FDA-Public Use
  Company Number: DE-BRISTOL-MYERS SQUIBB COMPANY-20564225

PATIENT
  Age: 41 Year
  Sex: Male

DRUGS (4)
  1. METFORMIN HCL [Suspect]
     Indication: TYPE 2 DIABETES MELLITUS
     Dosage: 400 MG
  2. INSULIN GLARGINE [Suspect]
     Indication: TYPE 2 DIABETES MELLITUS
  3. PREDNISOLONE [Concomitant]
     Indication: DEAFNESS NEUROSENSORY
     Dosage: STOPPED
  4. ALPHA-LIPOIC ACID [Concomitant]
     Indication: DEAFNESS NEUROSENSORY

REACTIONS (1)
  - Drug-induced liver injury [Recovering/Resolving]
